FAERS Safety Report 15650147 (Version 1)
Quarter: 2018Q4

REPORT INFORMATION
  Report Type: Spontaneous
  Country: GB (occurrence: GB)
  Receive Date: 20181123
  Receipt Date: 20181123
  Transmission Date: 20190205
  Serious: Yes (Other)
  Sender: FDA-Public Use
  Company Number: GB-TEVA-2018-GB-977318

PATIENT
  Age: 68 Year
  Sex: Female

DRUGS (7)
  1. ICLUSIG [Suspect]
     Active Substance: PONATINIB
     Indication: CHRONIC MYELOID LEUKAEMIA
     Dosage: 15 MILLIGRAM DAILY;
     Route: 048
     Dates: start: 20180628
  2. THYROXINE [Concomitant]
     Active Substance: LEVOTHYROXINE
  3. RANITIDINE. [Concomitant]
     Active Substance: RANITIDINE
  4. OMEPRAZOLE. [Suspect]
     Active Substance: OMEPRAZOLE
     Route: 065
     Dates: end: 20180914
  5. ICLUSIG [Suspect]
     Active Substance: PONATINIB
     Route: 048
     Dates: start: 20180906
  6. OMEPRAZOLE. [Suspect]
     Active Substance: OMEPRAZOLE
     Route: 065
     Dates: start: 20181001, end: 20181015
  7. ICLUSIG [Suspect]
     Active Substance: PONATINIB
     Dosage: THE DOSE WAS AMENDED TO 15/30 MG
     Route: 048
     Dates: start: 20180809, end: 20180913

REACTIONS (4)
  - Gastrooesophageal reflux disease [Unknown]
  - Acute kidney injury [Recovering/Resolving]
  - Off label use [Unknown]
  - Off label use [Unknown]

NARRATIVE: CASE EVENT DATE: 20180628
